FAERS Safety Report 17204365 (Version 2)
Quarter: 2020Q3

REPORT INFORMATION
  Report Type: Report from Study
  Country: US (occurrence: US)
  Receive Date: 20191226
  Receipt Date: 20200722
  Transmission Date: 20201102
  Serious: Yes (Other)
  Sender: FDA-Public Use
  Company Number: US-ACTELION-A-NJ2019-199839

PATIENT
  Sex: Female
  Weight: 80.73 kg

DRUGS (1)
  1. VELETRI [Suspect]
     Active Substance: EPOPROSTENOL
     Indication: PULMONARY ARTERIAL HYPERTENSION
     Dosage: 37 NG/KG, PER MIN
     Route: 042

REACTIONS (5)
  - Fall [Unknown]
  - Rib fracture [Unknown]
  - Rash erythematous [Unknown]
  - Dizziness [Unknown]
  - Pain in jaw [Unknown]
